FAERS Safety Report 21515093 (Version 1)
Quarter: 2022Q4

REPORT INFORMATION
  Report Type: Spontaneous
  Country: US (occurrence: US)
  Receive Date: 20221027
  Receipt Date: 20221027
  Transmission Date: 20230113
  Serious: Yes (Other)
  Sender: FDA-Public Use
  Company Number: US-SA-SAC20221021000057

PATIENT
  Age: 48 Year
  Sex: Female
  Weight: 89 kg

DRUGS (29)
  1. AUBAGIO [Suspect]
     Active Substance: TERIFLUNOMIDE
     Indication: Multiple sclerosis
     Dosage: 14 MG QD
     Route: 048
  2. ZIEXTENZO [Concomitant]
     Active Substance: PEGFILGRASTIM-BMEZ
  3. BENDEKA [Concomitant]
     Active Substance: BENDAMUSTINE HYDROCHLORIDE
  4. RITUXIMAB [Concomitant]
     Active Substance: RITUXIMAB
     Dosage: 25MG
  5. DALFAMPRIDINE [Concomitant]
     Active Substance: DALFAMPRIDINE
  6. BENADRYL [Concomitant]
     Active Substance: DIPHENHYDRAMINE HYDROCHLORIDE
  7. VITAMIN D3 [Concomitant]
     Active Substance: CHOLECALCIFEROL
  8. IBUPROFEN [Concomitant]
     Active Substance: IBUPROFEN
  9. ALBUTEROL [Concomitant]
     Active Substance: ALBUTEROL
  10. MIRTAZAPINE [Concomitant]
     Active Substance: MIRTAZAPINE
  11. ASPIRIN [Concomitant]
     Active Substance: ASPIRIN
  12. SUDAFED 12 HOUR [Concomitant]
     Active Substance: PSEUDOEPHEDRINE HYDROCHLORIDE
  13. TYLENOL [Concomitant]
     Active Substance: ACETAMINOPHEN
  14. EXCEDRIN EXTRA STRENGTH [Concomitant]
     Active Substance: ACETAMINOPHEN\ASPIRIN\CAFFEINE
  15. VITAMINS NOS [Concomitant]
     Active Substance: VITAMINS
  16. ZYRTEC [Concomitant]
     Active Substance: CETIRIZINE HYDROCHLORIDE
  17. BRONKAID MAX [Concomitant]
     Active Substance: EPHEDRINE SULFATE
  18. FLUTICASONE [Concomitant]
     Active Substance: FLUTICASONE
  19. METFORMIN [Concomitant]
     Active Substance: METFORMIN HYDROCHLORIDE
  20. SUCRALFATE [Concomitant]
     Active Substance: SUCRALFATE
  21. FAMOTIDINE [Concomitant]
     Active Substance: FAMOTIDINE
  22. TOPIRAMATE [Concomitant]
     Active Substance: TOPIRAMATE
  23. GUAIFENESIN [Concomitant]
     Active Substance: GUAIFENESIN
     Dosage: 10MG
  24. ATORVASTATIN CALCIUM [Concomitant]
     Active Substance: ATORVASTATIN CALCIUM
  25. TRAZODONE [Concomitant]
     Active Substance: TRAZODONE HYDROCHLORIDE
  26. SERTRALINE [Concomitant]
     Active Substance: SERTRALINE HYDROCHLORIDE
  27. GABAPENTIN [Concomitant]
     Active Substance: GABAPENTIN
     Dosage: 100MG
  28. CYCLOBENZAPRINE [Concomitant]
     Active Substance: CYCLOBENZAPRINE
     Dosage: 10MG
  29. BACLOFEN [Concomitant]
     Active Substance: BACLOFEN
     Dosage: 10MG

REACTIONS (3)
  - Bone marrow transplant [Unknown]
  - Sneezing [Unknown]
  - Limb discomfort [Unknown]
